FAERS Safety Report 16789160 (Version 1)
Quarter: 2019Q3

REPORT INFORMATION
  Report Type: Spontaneous
  Country: US (occurrence: US)
  Receive Date: 20190718
  Receipt Date: 20190718
  Transmission Date: 20191005
  Serious: Yes (Hospitalization)
  Sender: FDA-Public Use
  Company Number: None

PATIENT
  Sex: Female

DRUGS (1)
  1. CEFEPIME 2 GM APOTEX [Suspect]
     Active Substance: CEFEPIME HYDROCHLORIDE
     Indication: POSTOPERATIVE WOUND INFECTION
     Route: 042
     Dates: start: 20190614, end: 201907

REACTIONS (1)
  - Mental impairment [None]
